FAERS Safety Report 18101922 (Version 1)
Quarter: 2020Q3

REPORT INFORMATION
  Report Type: Report from Study
  Country: None (occurrence: NO)
  Receive Date: 20200802
  Receipt Date: 20200802
  Transmission Date: 20201103
  Serious: Yes (Hospitalization)
  Sender: FDA-Public Use
  Company Number: NO-ABBVIE-20K-122-3504616-00

PATIENT
  Age: 68 Year
  Sex: Female

DRUGS (2)
  1. DUODOPA [Suspect]
     Active Substance: CARBIDOPA\LEVODOPA
     Route: 050
     Dates: start: 20200609
  2. DUODOPA [Suspect]
     Active Substance: CARBIDOPA\LEVODOPA
     Indication: PRODUCT USED FOR UNKNOWN INDICATION
     Route: 050
     Dates: start: 20200526, end: 2020

REACTIONS (6)
  - Stoma site erythema [Unknown]
  - Stoma site discharge [Unknown]
  - Dehydration [Unknown]
  - Inflammation [Unknown]
  - Stoma site irritation [Unknown]
  - Pain [Unknown]

NARRATIVE: CASE EVENT DATE: 2020
